FAERS Safety Report 7369803-8 (Version None)
Quarter: 2011Q1

REPORT INFORMATION
  Report Type: 
  Country: None (occurrence: None)
  Receive Date: 20110323
  Receipt Date: 20110224
  Transmission Date: 20110831
  Serious: No
  Sender: FDA-Public Use
  Company Number: US-B.I. PHARMACEUTICALS,INC./RIDGEFIELD-2011-BP-06665BP

PATIENT
  Sex: Female

DRUGS (6)
  1. PRADAXA [Suspect]
     Indication: ATRIAL FIBRILLATION
     Dosage: 300 MG
     Route: 048
     Dates: start: 20110219
  2. PROCARDIA [Concomitant]
     Indication: HYPERTENSION
  3. BENICAR [Concomitant]
     Indication: HYPERTENSION
  4. RYTHMOL SR [Concomitant]
     Indication: ATRIAL FIBRILLATION
  5. VYTORIN [Concomitant]
     Indication: BLOOD CHOLESTEROL INCREASED
  6. BISOPROLOL FUMARATE AND HYDROCHLOROTHIAZIDE [Concomitant]
     Indication: HYPERTENSION

REACTIONS (2)
  - DYSPEPSIA [None]
  - URINE ABNORMALITY [None]
